FAERS Safety Report 19514288 (Version 1)
Quarter: 2021Q3

REPORT INFORMATION
  Report Type: Spontaneous
  Country: US (occurrence: US)
  Receive Date: 20210709
  Receipt Date: 20210709
  Transmission Date: 20211014
  Serious: No
  Sender: FDA-Public Use
  Company Number: US-009507513-2107USA001617

PATIENT
  Sex: Female

DRUGS (2)
  1. LENVATINIB MESYLATE [Suspect]
     Active Substance: LENVATINIB MESYLATE
     Indication: OVARIAN CANCER
     Dosage: 10 MILLIGRAM, 1 DAILY
     Route: 048
     Dates: start: 20210517
  2. KEYTRUDA [Suspect]
     Active Substance: PEMBROLIZUMAB

REACTIONS (8)
  - Oliguria [Unknown]
  - Oedema peripheral [Unknown]
  - Vomiting [Unknown]
  - Blood pressure orthostatic decreased [Unknown]
  - Accidental underdose [Unknown]
  - Renal disorder [Unknown]
  - Blood creatinine increased [Unknown]
  - Blood urea increased [Unknown]

NARRATIVE: CASE EVENT DATE: 2021
